FAERS Safety Report 8820049 (Version 1)
Quarter: 2012Q4

REPORT INFORMATION
  Report Type: 
  Country: ES (occurrence: ES)
  Receive Date: 20121001
  Receipt Date: 20121001
  Transmission Date: 20130627
  Serious: Yes (Hospitalization)
  Sender: FDA-Public Use
  Company Number: ES-BAXTER-2012BAX017785

PATIENT
  Age: 65 Year
  Sex: Female

DRUGS (2)
  1. IFOSFAMIDE [Suspect]
     Indication: SYNOVIAL SARCOMA
     Route: 041
     Dates: start: 20120508, end: 20120510
  2. MORPHINE HYDROCHLORIDE [Suspect]
     Indication: PAIN
     Route: 058
     Dates: start: 20120507, end: 20120509

REACTIONS (8)
  - Disorientation [Recovered/Resolved]
  - Miosis [Recovered/Resolved]
  - Tremor [Recovered/Resolved]
  - Restlessness [Recovered/Resolved]
  - Hallucination, visual [Recovered/Resolved]
  - Stupor [Recovered/Resolved]
  - Incoherent [Recovered/Resolved]
  - Agitation [Recovered/Resolved]
